FAERS Safety Report 5742127-8 (Version None)
Quarter: 2008Q2

REPORT INFORMATION
  Report Type: 
  Country: None (occurrence: None)
  Receive Date: 20080515
  Receipt Date: 20080421
  Transmission Date: 20081010
  Serious: Yes (Hospitalization)
  Sender: FDA-Public Use
  Company Number: US023326

PATIENT
  Age: 54 Year
  Sex: Male

DRUGS (1)
  1. PROVIGIL [Suspect]
     Dosage: 600MG TO 1600MG ORAL
     Route: 048

REACTIONS (1)
  - DRUG ABUSE [None]
